FAERS Safety Report 8812755 (Version 2)
Quarter: 2014Q3

REPORT INFORMATION
  Report Type: Report from Study
  Country: US (occurrence: US)
  Receive Date: 20120927
  Receipt Date: 20140905
  Transmission Date: 20150326
  Serious: Yes (Hospitalization, Other)
  Sender: FDA-Public Use
  Company Number: US-ROCHE-1127985

PATIENT
  Sex: Female
  Weight: 94 kg

DRUGS (4)
  1. TAXOTERE [Concomitant]
     Active Substance: DOCETAXEL
  2. AVASTIN [Suspect]
     Active Substance: BEVACIZUMAB
     Indication: LUNG NEOPLASM MALIGNANT
     Route: 042
     Dates: start: 20060918
  3. GEMZAR [Concomitant]
     Active Substance: GEMCITABINE HYDROCHLORIDE
     Route: 065
     Dates: start: 20060918
  4. AVASTIN [Suspect]
     Active Substance: BEVACIZUMAB
     Indication: NON-SMALL CELL LUNG CANCER

REACTIONS (10)
  - Asthenia [Unknown]
  - Hypomagnesaemia [Unknown]
  - Hypertension [Unknown]
  - Lung neoplasm [Unknown]
  - Hypocalcaemia [Unknown]
  - Cerebrovascular accident [Unknown]
  - Lymphadenopathy mediastinal [Unknown]
  - Pneumonia [Unknown]
  - Dermatitis exfoliative [Unknown]
  - Drug intolerance [Unknown]
